FAERS Safety Report 7953287-2 (Version None)
Quarter: 2011Q4

REPORT INFORMATION
  Report Type: 
  Country: None (occurrence: None)
  Receive Date: 20111202
  Receipt Date: 20111118
  Transmission Date: 20120403
  Serious: Yes (Death)
  Sender: FDA-Public Use
  Company Number: PT-MYLANLABS-2011S1024306

PATIENT
  Age: 47 Year
  Sex: Female

DRUGS (6)
  1. AZATHIOPRINE [Suspect]
     Indication: POLYMYOSITIS
     Route: 065
  2. FENOFIBRATE [Concomitant]
     Route: 065
  3. METFORMIN HCL [Concomitant]
     Route: 065
  4. PIOGLITAZONE [Concomitant]
     Route: 065
  5. LISINOPRIL [Concomitant]
     Route: 065
  6. VILDAGLIPTIN [Concomitant]
     Route: 065

REACTIONS (3)
  - PANCYTOPENIA [None]
  - NICOTINIC ACID DEFICIENCY [None]
  - BONE MARROW FAILURE [None]
